FAERS Safety Report 8846940 (Version 1)
Quarter: 2012Q4

REPORT INFORMATION
  Report Type: 
  Country: BR (occurrence: BR)
  Receive Date: 20121018
  Receipt Date: 20121018
  Transmission Date: 20130627
  Serious: Yes (Other)
  Sender: FDA-Public Use
  Company Number: BR-BAYER-2012-108961

PATIENT
  Age: 60 Year
  Sex: Female

DRUGS (1)
  1. ULTRAVIST [Suspect]

REACTIONS (1)
  - Epilepsy [Recovered/Resolved]
